FAERS Safety Report 19630453 (Version 2)
Quarter: 2021Q3

REPORT INFORMATION
  Report Type: Report from Study
  Country: CO (occurrence: CO)
  Receive Date: 20210729
  Receipt Date: 20210908
  Transmission Date: 20211014
  Serious: No
  Sender: FDA-Public Use
  Company Number: NVSC2021CO165207

PATIENT
  Sex: Female
  Weight: 64 kg

DRUGS (5)
  1. PREGABALIN. [Concomitant]
     Active Substance: PREGABALIN
     Indication: OSTEOARTHRITIS
     Dosage: 75 MG (24 YEARS) (STARTED 8 MONTHS AGO)
     Route: 048
  2. METFORMIN [Concomitant]
     Active Substance: METFORMIN HYDROCHLORIDE
     Indication: DIABETES MELLITUS
     Dosage: 850 MG, Q24H (TWO YEARS AGO)
     Route: 048
  3. OLOPAT [Concomitant]
     Indication: EYE DISORDER
     Dosage: 2 MG/ML, Q12H (STARTED ONE YEAR AGO)
     Route: 047
  4. ARTIFICIAL TEARS [Concomitant]
     Active Substance: GLYCERIN\HYPROMELLOSES\POLYETHYLENE GLYCOL 400
     Indication: EYE DISORDER
     Dosage: UNK UNK, Q12H
     Route: 047
  5. COSENTYX [Suspect]
     Active Substance: SECUKINUMAB
     Indication: PSORIASIS
     Dosage: 300 MG, QMO
     Route: 058
     Dates: start: 202102

REACTIONS (4)
  - Overweight [Unknown]
  - Weight decreased [Unknown]
  - Back pain [Recovering/Resolving]
  - Skin plaque [Recovering/Resolving]
